FAERS Safety Report 8198454-0 (Version None)
Quarter: 2012Q1

REPORT INFORMATION
  Report Type: 
  Country: None (occurrence: None)
  Receive Date: 20120309
  Receipt Date: 20111208
  Transmission Date: 20120608
  Serious: No
  Sender: FDA-Public Use
  Company Number: US-AMGEN-USASP2011065413

PATIENT
  Age: 79 Year
  Sex: Female

DRUGS (5)
  1. CALCIUM [Concomitant]
  2. PROLIA [Suspect]
  3. CRESTOR [Concomitant]
     Dosage: 20 MG, UNK
  4. VITAMIN D [Concomitant]
  5. PROLIA [Suspect]
     Indication: OSTEOPOROSIS POSTMENOPAUSAL
     Dosage: UNK
     Route: 058
     Dates: start: 20111116

REACTIONS (4)
  - MYALGIA [None]
  - ARTHRALGIA [None]
  - PYREXIA [None]
  - RASH [None]
